FAERS Safety Report 7372842-4 (Version None)
Quarter: 2011Q1

REPORT INFORMATION
  Report Type: 
  Country: None (occurrence: None)
  Receive Date: 20110324
  Receipt Date: 20110316
  Transmission Date: 20110831
  Serious: Yes (Other)
  Sender: FDA-Public Use
  Company Number: US-PFIZER INC-2010100380

PATIENT
  Sex: Male

DRUGS (2)
  1. LIPITOR [Suspect]
     Dosage: UNK
     Dates: start: 20070401
  2. LIPITOR [Suspect]
     Dosage: 10 MG DAILY
     Route: 048
     Dates: start: 20060401, end: 20070301

REACTIONS (19)
  - NEUROPATHY PERIPHERAL [None]
  - COGNITIVE DISORDER [None]
  - BALANCE DISORDER [None]
  - CONFUSIONAL STATE [None]
  - SPONDYLOLISTHESIS [None]
  - DEPRESSION [None]
  - DISORIENTATION [None]
  - IRRITABILITY [None]
  - AMNESIA [None]
  - HOSTILITY [None]
  - SPINAL OSTEOARTHRITIS [None]
  - EXECUTIVE DYSFUNCTION [None]
  - FATIGUE [None]
  - SENSORY DISTURBANCE [None]
  - SPONDYLOLYSIS [None]
  - SUICIDAL IDEATION [None]
  - BREAKTHROUGH PAIN [None]
  - INJURY [None]
  - COMPLEX REGIONAL PAIN SYNDROME [None]
